FAERS Safety Report 25825789 (Version 2)
Quarter: 2025Q4

REPORT INFORMATION
  Report Type: Spontaneous
  Country: KR (occurrence: KR)
  Receive Date: 20250919
  Receipt Date: 20251110
  Transmission Date: 20260119
  Serious: No
  Sender: PFIZER
  Company Number: KR-PFIZER INC-PV202500112131

PATIENT
  Age: 13 Year

DRUGS (1)
  1. GENOTROPIN [Suspect]
     Active Substance: SOMATROPIN
     Dosage: 3.2 IU, DAILY (7 TIMES WEEKLY)

REACTIONS (3)
  - Device physical property issue [Unknown]
  - Device breakage [Unknown]
  - Drug dose omission by device [Unknown]
